FAERS Safety Report 4591649-4 (Version None)
Quarter: 2005Q1

REPORT INFORMATION
  Report Type: 
  Country: None (occurrence: None)
  Receive Date: 20050218
  Receipt Date: 20050207
  Transmission Date: 20050727
  Serious: Yes (Hospitalization, Other)
  Sender: FDA-Public Use
  Company Number: 2004102606

PATIENT
  Age: 78 Year
  Sex: Female
  Weight: 122.9248 kg

DRUGS (7)
  1. CELEBREX [Suspect]
     Indication: RHEUMATOID ARTHRITIS
     Dosage: 200 MG (100 MG, 1 IN 2 D), ORAL
     Route: 048
     Dates: start: 20010301, end: 20041201
  2. ADALIMUMAB (ADALIMUMAB) [Suspect]
     Indication: RHEUMATOID ARTHRITIS
     Dosage: SUBCUTANEOUS
     Route: 058
     Dates: end: 20041201
  3. ALL OTHER THERAPEUTIC PRODUCTS (ALL OTHER THERAPEUTIC PRODUCTS) [Suspect]
     Indication: ARTHRITIS
     Dates: end: 20040101
  4. METHOTREXATE [Concomitant]
  5. FOLIC ACID [Concomitant]
  6. BUMETANIDE [Concomitant]
  7. HUMULIN 70/30 [Concomitant]

REACTIONS (2)
  - COLORECTAL CANCER [None]
  - HAEMORRHOIDAL HAEMORRHAGE [None]
